FAERS Safety Report 10242023 (Version 1)
Quarter: 2014Q2

REPORT INFORMATION
  Report Type: Spontaneous
  Country: US (occurrence: US)
  Receive Date: 20140617
  Receipt Date: 20140617
  Transmission Date: 20141212
  Serious: No
  Sender: FDA-Public Use
  Company Number: US-PFIZER INC-2014164444

PATIENT
  Age: 15 Year
  Sex: Male
  Weight: 79.37 kg

DRUGS (1)
  1. RELPAX [Suspect]
     Indication: HEADACHE
     Dosage: 40 MG, UNK
     Dates: start: 20140613

REACTIONS (3)
  - Off label use [Unknown]
  - Throat tightness [Unknown]
  - Myalgia [Unknown]
